FAERS Safety Report 8499103-4 (Version None)
Quarter: 2012Q3

REPORT INFORMATION
  Report Type: 
  Country: None (occurrence: None)
  Receive Date: 20120710
  Receipt Date: 20120705
  Transmission Date: 20120928
  Serious: Yes (Life-Threatening, Hospitalization)
  Sender: FDA-Public Use
  Company Number: PL-SHIRE-ALL1-2012-02692

PATIENT
  Sex: Male

DRUGS (5)
  1. IDURSULFASE [Suspect]
     Indication: MUCOPOLYSACCHARIDOSIS II
     Dosage: UNK, 1X/WEEK
     Route: 041
     Dates: start: 20090924, end: 20110601
  2. LEVETIRACETAM [Concomitant]
     Indication: NERVOUS SYSTEM DISORDER
     Dosage: 375 MG, 2X/DAY:BID
     Route: 065
     Dates: start: 20100701
  3. LAMOTRIGINE [Concomitant]
     Indication: NERVOUS SYSTEM DISORDER
     Dosage: 75 MG, 2X/DAY:BID
     Route: 065
     Dates: start: 20090919
  4. TRIMEBUTINE [Concomitant]
     Indication: GASTROINTESTINAL DISORDER
     Dosage: UNK, UNKNOWN
     Route: 065
     Dates: start: 20100701
  5. CILAZAPRIL [Concomitant]
     Indication: CARDIOVASCULAR DISORDER
     Dosage: .25 MG, 1X/DAY:QD
     Route: 048
     Dates: start: 20090916

REACTIONS (3)
  - NEPHROLITHIASIS [None]
  - THROMBOCYTOPENIA [None]
  - URINARY TRACT INFECTION [None]
